FAERS Safety Report 17734304 (Version 2)
Quarter: 2021Q1

REPORT INFORMATION
  Report Type: Spontaneous
  Country: CZ (occurrence: CZ)
  Receive Date: 20200501
  Receipt Date: 20210223
  Transmission Date: 20210419
  Serious: Yes (Other)
  Sender: FDA-Public Use
  Company Number: CZ-ALEXION-A202004635

PATIENT
  Age: 19 Year
  Sex: Female

DRUGS (1)
  1. SOLIRIS [Suspect]
     Active Substance: ECULIZUMAB
     Indication: ATYPICAL HAEMOLYTIC URAEMIC SYNDROME
     Dosage: UNK
     Route: 065
     Dates: start: 2018

REACTIONS (4)
  - Tremor [Recovered/Resolved]
  - Pyrexia [Recovered/Resolved]
  - Thrombocytosis [Recovered/Resolved]
  - Delirium [Recovered/Resolved]
